FAERS Safety Report 17499298 (Version 3)
Quarter: 2023Q4

REPORT INFORMATION
  Report Type: Report from Study
  Country: CA (occurrence: None)
  Receive Date: 20200305
  Receipt Date: 20231019
  Transmission Date: 20240110
  Serious: Yes (Other)
  Sender: FDA-Public Use
  Company Number: CA-ORION CORPORATION ORION PHARMA-TREX2020-1200

PATIENT
  Age: 16 Year
  Sex: Female

DRUGS (10)
  1. METHOTREXATE [Suspect]
     Active Substance: METHOTREXATE
     Indication: Product used for unknown indication
  2. ETANERCEPT [Suspect]
     Active Substance: ETANERCEPT
     Indication: Juvenile idiopathic arthritis
  3. ETANERCEPT [Suspect]
     Active Substance: ETANERCEPT
  4. ERELZI [Suspect]
     Active Substance: ETANERCEPT-SZZS
     Indication: Juvenile idiopathic arthritis
  5. ERELZI [Suspect]
     Active Substance: ETANERCEPT-SZZS
  6. DESOXIMETASONE [Concomitant]
     Active Substance: DESOXIMETASONE
  7. DICLOFENAC [Concomitant]
     Active Substance: DICLOFENAC
  8. INDOMETHACIN [Concomitant]
     Active Substance: INDOMETHACIN
  9. PREDNISONE [Concomitant]
     Active Substance: PREDNISONE
  10. RANITIDINE [Concomitant]
     Active Substance: RANITIDINE

REACTIONS (7)
  - Drug ineffective [Unknown]
  - C-reactive protein increased [Unknown]
  - Dizziness [Unknown]
  - Joint swelling [Unknown]
  - Nausea [Unknown]
  - Sacroiliitis [Unknown]
  - White blood cell count decreased [Unknown]
